FAERS Safety Report 6254700-1 (Version None)
Quarter: 2009Q3

REPORT INFORMATION
  Report Type: 
  Country: None (occurrence: None)
  Receive Date: 20090702
  Receipt Date: 20090624
  Transmission Date: 20100115
  Serious: Yes (Other)
  Sender: FDA-Public Use
  Company Number: US-PFIZER INC-2005145537

PATIENT
  Sex: Male
  Weight: 113.4 kg

DRUGS (9)
  1. VIAGRA [Suspect]
     Indication: ERECTILE DYSFUNCTION
  2. ACETYLSALICYLIC ACID [Concomitant]
  3. FLOMAX [Concomitant]
  4. PANTOPRAZOLE [Concomitant]
  5. SIMVASTATIN [Concomitant]
  6. NADOLOL [Concomitant]
  7. DIOVAN [Concomitant]
  8. METFORMIN HYDROCHLORIDE [Concomitant]
  9. TESTOSTERONE [Concomitant]

REACTIONS (8)
  - COUGH [None]
  - DRUG EFFECT DELAYED [None]
  - FEELING ABNORMAL [None]
  - SINUSITIS [None]
  - THERAPEUTIC RESPONSE DECREASED [None]
  - TRANSURETHRAL PROSTATECTOMY [None]
  - URINARY TRACT INFECTION [None]
  - URINE COLOUR ABNORMAL [None]
